FAERS Safety Report 19691407 (Version 1)
Quarter: 2021Q3

REPORT INFORMATION
  Report Type: Spontaneous
  Country: US (occurrence: US)
  Receive Date: 20210812
  Receipt Date: 20210812
  Transmission Date: 20211014
  Serious: Yes (Other)
  Sender: FDA-Public Use
  Company Number: US-PROCTER_AND_GAMBLE-GS21072294

PATIENT
  Sex: Female

DRUGS (1)
  1. CREST PRO?HEALTH ADVANCED W/EXTRA DEEP CLEAN [Suspect]
     Active Substance: SODIUM FLUORIDE
     Route: 002

REACTIONS (2)
  - Documented hypersensitivity to administered product [Unknown]
  - Anaphylactic reaction [Unknown]
